FAERS Safety Report 4644356-3 (Version None)
Quarter: 2005Q2

REPORT INFORMATION
  Report Type: 
  Country: None (occurrence: None)
  Receive Date: 20050331
  Receipt Date: 20041227
  Transmission Date: 20051028
  Serious: No
  Sender: FDA-Public Use
  Company Number: 04P-163-0284725-00

PATIENT
  Age: 55 Year
  Sex: Female
  Weight: 72.5755 kg

DRUGS (4)
  1. HUMIRA [Suspect]
     Indication: RHEUMATOID ARTHRITIS
     Dosage: 40 MG, 1 IN 2 WK, SUBCUTANEOUS
     Route: 058
     Dates: start: 20040501
  2. CO-DIOVAN [Concomitant]
  3. VITAMIN B COMPLEX CAP [Concomitant]
  4. CALCIUM CITRATE [Concomitant]

REACTIONS (2)
  - BLOOD POTASSIUM DECREASED [None]
  - INJECTION SITE IRRITATION [None]
